FAERS Safety Report 25207499 (Version 3)
Quarter: 2025Q2

REPORT INFORMATION
  Report Type: Spontaneous
  Country: ES (occurrence: ES)
  Receive Date: 20250417
  Receipt Date: 20250519
  Transmission Date: 20250717
  Serious: Yes (Hospitalization, Other)
  Sender: CELLTRION
  Company Number: ES-ROCHE-10000107820

PATIENT

DRUGS (9)
  1. RITUXIMAB [Suspect]
     Active Substance: RITUXIMAB
     Indication: Diffuse large B-cell lymphoma
     Route: 042
     Dates: start: 20240925, end: 20240925
  2. RITUXIMAB [Suspect]
     Active Substance: RITUXIMAB
     Route: 042
  3. PREDNISOLONE [Suspect]
     Active Substance: PREDNISOLONE
     Indication: Diffuse large B-cell lymphoma
     Route: 042
     Dates: start: 20240925, end: 20240925
  4. CYTARABINE [Concomitant]
     Active Substance: CYTARABINE
     Route: 037
     Dates: start: 20240924, end: 20240924
  5. HYDROCORTISONE [Concomitant]
     Active Substance: HYDROCORTISONE
     Route: 037
     Dates: start: 20240924, end: 20240924
  6. METHOTREXATE [Concomitant]
     Active Substance: METHOTREXATE
     Route: 037
     Dates: start: 20240924, end: 20240924
  7. DEXCHLORPHENIRAMINE [Concomitant]
     Active Substance: DEXCHLORPHENIRAMINE
     Route: 042
     Dates: start: 20240925, end: 20241008
  8. METHYLPREDNISOLONE [Concomitant]
     Active Substance: METHYLPREDNISOLONE
     Route: 042
     Dates: start: 20240925, end: 20241010
  9. ACETAMINOPHEN [Concomitant]
     Active Substance: ACETAMINOPHEN
     Route: 042
     Dates: start: 20240925, end: 20240930

REACTIONS (2)
  - Respiratory distress [Recovered/Resolved]
  - Infusion related reaction [Recovered/Resolved]

NARRATIVE: CASE EVENT DATE: 20240925
